FAERS Safety Report 6781372-X (Version None)
Quarter: 2010Q2

REPORT INFORMATION
  Report Type: 
  Country: None (occurrence: None)
  Receive Date: 20100621
  Receipt Date: 20100615
  Transmission Date: 20101027
  Serious: Yes (Hospitalization)
  Sender: FDA-Public Use
  Company Number: US-SANOFI-AVENTIS-2010SA034661

PATIENT
  Age: 73 Year
  Sex: Female
  Weight: 91.16 kg

DRUGS (5)
  1. PLAVIX [Suspect]
     Indication: ACUTE CORONARY SYNDROME
     Route: 048
     Dates: start: 20100308, end: 20100516
  2. PLAVIX [Suspect]
     Route: 048
     Dates: start: 20100601
  3. MULTI-VITAMINS [Concomitant]
     Dates: start: 20100330
  4. PROTON PUMP INHIBITORS [Concomitant]
  5. ALL OTHER THERAPEUTIC PRODUCTS [Concomitant]

REACTIONS (2)
  - EROSIVE OESOPHAGITIS [None]
  - HAEMATEMESIS [None]
